FAERS Safety Report 24017736 (Version 3)
Quarter: 2024Q3

REPORT INFORMATION
  Report Type: Spontaneous
  Country: US (occurrence: US)
  Receive Date: 20240627
  Receipt Date: 20240802
  Transmission Date: 20241017
  Serious: Yes (Hospitalization)
  Sender: CELLTRION
  Company Number: US-CELLTRION INC.-2024US015240

PATIENT

DRUGS (5)
  1. TRUXIMA [Suspect]
     Active Substance: RITUXIMAB-ABBS
     Indication: Systemic scleroderma
     Dosage: ^1000 MG THEN ANOTHER 1000 MG TWO WEEKS LATER EVERY 16 WEEKS^
  2. TRUXIMA [Suspect]
     Active Substance: RITUXIMAB-ABBS
     Indication: Dermatomyositis
     Dosage: 2000 MG EVERY 16 WEEKS
  3. TRUXIMA [Suspect]
     Active Substance: RITUXIMAB-ABBS
     Indication: Sjogren^s syndrome
  4. RITUXAN [Suspect]
     Active Substance: RITUXIMAB
     Indication: Systemic scleroderma
     Dosage: ^I HAVE BEEN ON RITUXAN THEN TRUXIMA FOR 9 YEARS, EVERY 16 WEEKS.^
  5. RITUXAN [Suspect]
     Active Substance: RITUXIMAB
     Indication: Dermatomyositis

REACTIONS (3)
  - Hospitalisation [Recovered/Resolved]
  - Walking aid user [Unknown]
  - Off label use [Unknown]
